FAERS Safety Report 8881987 (Version 4)
Quarter: 2015Q2

REPORT INFORMATION
  Report Type: Spontaneous
  Country: US (occurrence: US)
  Receive Date: 20121102
  Receipt Date: 20150417
  Transmission Date: 20150821
  Serious: Yes (Hospitalization, Other)
  Sender: FDA-Public Use
  Company Number: US-ASTRAZENECA-2012SE81759

PATIENT
  Age: 66 Year
  Sex: Female
  Weight: 142.4 kg

DRUGS (2)
  1. SYMBICORT [Suspect]
     Active Substance: BUDESONIDE\FORMOTEROL FUMARATE DIHYDRATE
     Indication: CHRONIC OBSTRUCTIVE PULMONARY DISEASE
     Dosage: 160/4.5 TWO PUFFS BID
     Route: 055
  2. SYMBICORT [Suspect]
     Active Substance: BUDESONIDE\FORMOTEROL FUMARATE DIHYDRATE
     Indication: ASTHMA
     Dosage: 160/4.5 TWO PUFFS BID
     Route: 055

REACTIONS (12)
  - Dyspnoea [Unknown]
  - Drug dose omission [Unknown]
  - Depressed level of consciousness [Unknown]
  - Abasia [Unknown]
  - Intentional product misuse [Unknown]
  - Respiratory failure [Unknown]
  - Joint injury [Unknown]
  - Aortic valve disease [Unknown]
  - Renal impairment [Unknown]
  - Hypersensitivity [Unknown]
  - Limb injury [Unknown]
  - Malaise [Unknown]

NARRATIVE: CASE EVENT DATE: 2012
